FAERS Safety Report 26067938 (Version 1)
Quarter: 2025Q4

REPORT INFORMATION
  Report Type: Spontaneous
  Country: US (occurrence: US)
  Receive Date: 20251120
  Receipt Date: 20251120
  Transmission Date: 20260118
  Serious: No
  Sender: LUPIN
  Company Number: US-LUPIN PHARMACEUTICALS INC.-2025-10298

PATIENT

DRUGS (1)
  1. ALBUTEROL SULFATE [Suspect]
     Active Substance: ALBUTEROL SULFATE
     Indication: Asthma
     Dosage: 2 PUFFS EVERY 4 HOURS PRN

REACTIONS (4)
  - Dyspnoea [Unknown]
  - Drug dose omission by device [Unknown]
  - Wrong technique in product usage process [Unknown]
  - Device occlusion [Unknown]
